FAERS Safety Report 7769224-X (Version None)
Quarter: 2011Q3

REPORT INFORMATION
  Report Type: 
  Country: None (occurrence: None)
  Receive Date: 20110922
  Receipt Date: 20110913
  Transmission Date: 20111222
  Serious: Yes (Other)
  Sender: FDA-Public Use
  Company Number: US-EISAI INC-E7389-01522-SPO-US

PATIENT
  Sex: Female

DRUGS (1)
  1. HALAVEN [Suspect]
     Indication: BREAST CANCER
     Route: 041
     Dates: start: 20110101, end: 20110101

REACTIONS (5)
  - SKIN EXFOLIATION [None]
  - GAIT DISTURBANCE [None]
  - RASH [None]
  - OEDEMA [None]
  - STEVENS-JOHNSON SYNDROME [None]
